FAERS Safety Report 5196218-3 (Version None)
Quarter: 2007Q1

REPORT INFORMATION
  Report Type: 
  Country: None (occurrence: None)
  Receive Date: 20070102
  Receipt Date: 20061221
  Transmission Date: 20070707
  Serious: Yes (Death, Hospitalization)
  Sender: FDA-Public Use
  Company Number: BR-PFIZER INC-2006032775

PATIENT
  Sex: Male
  Weight: 69 kg

DRUGS (7)
  1. SU-011,248 [Suspect]
     Indication: METASTATIC RENAL CELL CARCINOMA
     Route: 048
     Dates: start: 20060118, end: 20060313
  2. SECOTEX [Concomitant]
     Route: 048
  3. DEXAMETHASONE [Concomitant]
     Route: 048
  4. CELECOXIB [Concomitant]
     Route: 048
  5. GLICLAZIDE [Concomitant]
     Route: 048
  6. FENTANYL [Concomitant]
     Route: 048
  7. MORPHINE [Concomitant]
     Route: 048

REACTIONS (6)
  - ANOREXIA [None]
  - ASTHENIA [None]
  - DISEASE PROGRESSION [None]
  - LEUKOCYTOCLASTIC VASCULITIS [None]
  - METASTATIC RENAL CELL CARCINOMA [None]
  - NEUROTOXICITY [None]
